FAERS Safety Report 19042287 (Version 1)
Quarter: 2021Q1

REPORT INFORMATION
  Report Type: Spontaneous
  Country: IN (occurrence: IN)
  Receive Date: 20210323
  Receipt Date: 20210323
  Transmission Date: 20210420
  Serious: Yes (Life-Threatening)
  Sender: FDA-Public Use
  Company Number: IN-PFIZER INC-2021260217

PATIENT
  Age: 21 Year
  Sex: Female
  Weight: 65 kg

DRUGS (3)
  1. OXYTOCIN. [Concomitant]
     Active Substance: OXYTOCIN
     Dosage: 15 IU
     Route: 042
  2. CARBOPROST TROMETAMOL [Suspect]
     Active Substance: CARBOPROST TROMETHAMINE
     Indication: POSTPARTUM HAEMORRHAGE
     Dosage: UNK, INTRAMYOMETRIAL INJECTION
  3. METHYL ERGOMETRINE [Concomitant]
     Indication: UTERINE ATONY
     Dosage: 0.2 MG
     Route: 042

REACTIONS (4)
  - Off label use [Unknown]
  - Incorrect route of product administration [Unknown]
  - Cerebral vasoconstriction [Unknown]
  - Generalised tonic-clonic seizure [Recovered/Resolved]
